FAERS Safety Report 11298331 (Version 1)
Quarter: 2015Q3

REPORT INFORMATION
  Report Type: Spontaneous
  Country: US (occurrence: US)
  Receive Date: 20150722
  Receipt Date: 20150722
  Transmission Date: 20151125
  Serious: Yes (Hospitalization)
  Sender: FDA-Public Use
  Company Number: US-ELI_LILLY_AND_COMPANY-US201106003326

PATIENT
  Sex: Male
  Weight: 85.26 kg

DRUGS (7)
  1. EFFIENT [Suspect]
     Active Substance: PRASUGREL HYDROCHLORIDE
     Indication: PERCUTANEOUS CORONARY INTERVENTION
     Dosage: 10 MG, QD
     Route: 048
     Dates: start: 20110429, end: 20110524
  2. PLAVIX [Concomitant]
     Active Substance: CLOPIDOGREL BISULFATE
  3. VITAMIN B12 [Concomitant]
     Active Substance: CYANOCOBALAMIN
  4. ACETYLSALICYLIC ACID [Concomitant]
     Active Substance: ASPIRIN
     Dosage: 325 MG, QD
  5. VITAMIN D3 [Concomitant]
     Active Substance: CHOLECALCIFEROL
  6. HUMALOG [Concomitant]
     Active Substance: INSULIN LISPRO
  7. VITAMIN B1 [Concomitant]
     Active Substance: THIAMINE HYDROCHLORIDE

REACTIONS (1)
  - Rash [Unknown]
